FAERS Safety Report 19500088 (Version 3)
Quarter: 2021Q3

REPORT INFORMATION
  Report Type: Report from Study
  Country: FR (occurrence: FR)
  Receive Date: 20210706
  Receipt Date: 20210803
  Transmission Date: 20211014
  Serious: Yes (Hospitalization)
  Sender: FDA-Public Use
  Company Number: FR-SEATTLE GENETICS-2021SGN03448

PATIENT
  Age: 57 Year
  Sex: Male
  Weight: 60 kg

DRUGS (6)
  1. TUCATINIB [Suspect]
     Active Substance: TUCATINIB
     Indication: COLORECTAL CANCER METASTATIC
     Dosage: 300 MG, TWICE DAILY ON DAYS 1 TO 21 OF EACH 21?DAY CYCLE
     Route: 048
     Dates: start: 20210517, end: 20210628
  2. VALIUM [Concomitant]
     Active Substance: DIAZEPAM
     Indication: PROPHYLAXIS
     Dosage: UNK
     Dates: start: 2021
  3. TRASTUZUMAB. [Suspect]
     Active Substance: TRASTUZUMAB
     Indication: COLORECTAL CANCER METASTATIC
     Dosage: 8 MG/KG, OVER 90 MINUTES ON DAY 1 OF CYCLE 1
     Route: 042
     Dates: start: 20210517, end: 20210607
  4. TRASTUZUMAB. [Suspect]
     Active Substance: TRASTUZUMAB
     Dosage: 6 MG/KG OVER 30 MINUTES ON DAY 1 OF EACH CYCLE
     Route: 042
     Dates: end: 20210607
  5. TERCIAN [CYAMEMAZINE] [Concomitant]
     Active Substance: CYAMEMAZINE
     Indication: PROPHYLAXIS
     Dosage: UNK
     Dates: start: 2021
  6. RAMIPRIL. [Concomitant]
     Active Substance: RAMIPRIL
     Indication: HYPERTENSION
     Dosage: UNK
     Dates: start: 2021

REACTIONS (1)
  - General physical health deterioration [Not Recovered/Not Resolved]

NARRATIVE: CASE EVENT DATE: 20210629
